FAERS Safety Report 6844055-3 (Version None)
Quarter: 2010Q3

REPORT INFORMATION
  Report Type: 
  Country: None (occurrence: None)
  Receive Date: 20100714
  Receipt Date: 20100714
  Transmission Date: 20110219
  Serious: Yes (Other)
  Sender: FDA-Public Use
  Company Number: None

PATIENT
  Sex: Male
  Weight: 114.3065 kg

DRUGS (1)
  1. STELARA [Suspect]
     Indication: PSORIASIS
     Dosage: 90 MG Q 3 MONTHS SQ
     Route: 058
     Dates: start: 20100309, end: 20100603

REACTIONS (1)
  - HERPES ZOSTER [None]
